FAERS Safety Report 25012521 (Version 1)
Quarter: 2025Q1

REPORT INFORMATION
  Report Type: Spontaneous
  Country: BR (occurrence: BR)
  Receive Date: 20250226
  Receipt Date: 20250226
  Transmission Date: 20250409
  Serious: Yes (Hospitalization, Other)
  Sender: GLAXOSMITHKLINE
  Company Number: BR-GLAXOSMITHKLINE INC-BR2025AMR019927

PATIENT

DRUGS (1)
  1. NUCALA [Suspect]
     Active Substance: MEPOLIZUMAB
     Indication: Asthma
     Dosage: UNK UNK, Q4W

REACTIONS (4)
  - Herpes zoster [Not Recovered/Not Resolved]
  - Asthma [Not Recovered/Not Resolved]
  - Syncope [Not Recovered/Not Resolved]
  - Drug ineffective [Unknown]
